FAERS Safety Report 17563438 (Version 2)
Quarter: 2020Q2

REPORT INFORMATION
  Report Type: Spontaneous
  Country: US (occurrence: US)
  Receive Date: 20200319
  Receipt Date: 20200619
  Transmission Date: 20200713
  Serious: No
  Sender: FDA-Public Use
  Company Number: US-CATALYST PHARMACEUTICALS, INC-2020CAT00009

PATIENT
  Age: 45 Year
  Sex: Female
  Weight: 73.02 kg

DRUGS (21)
  1. ASPIRIN. [Suspect]
     Active Substance: ASPIRIN
     Dosage: 81 MG, 1X/DAY
  2. PROFUSION IRON AND PROBIOTIC [Concomitant]
     Dosage: UNK, 1X/DAY
  3. ADVAIR HFA [Concomitant]
     Active Substance: FLUTICASONE PROPIONATE\SALMETEROL XINAFOATE
  4. PROAIR RESPICLICK INHALER [Concomitant]
     Dosage: UNK, AS NEEDED
     Route: 055
  5. FIRDAPSE [Suspect]
     Active Substance: AMIFAMPRIDINE
     Indication: MYASTHENIC SYNDROME
     Dosage: 10 MG, 3X/DAY
     Route: 048
     Dates: start: 20191220, end: 20191226
  6. FIRDAPSE [Suspect]
     Active Substance: AMIFAMPRIDINE
     Dosage: 20 MG, 3X/DAY
     Route: 048
     Dates: start: 20200103
  7. ASPIRIN. [Suspect]
     Active Substance: ASPIRIN
     Dosage: UNK, EVERY 48 HOURS (WHEN ON HER PERIOD)
  8. VITAMIN D [Concomitant]
     Active Substance: VITAMIN D NOS
     Dosage: UNK, 1X/DAY
  9. NEBULIZER [Concomitant]
     Active Substance: DEVICE
     Dosage: UNK, AS NEEDED
  10. UNSPECIFIED NASAL SPRAY [Concomitant]
     Active Substance: UNSPECIFIED INGREDIENT
  11. TAMOXIFEN [Suspect]
     Active Substance: TAMOXIFEN
     Dosage: UNK, 1X/DAY EARLIER IN THE DAY
  12. VITAMIN B12 [Concomitant]
     Active Substance: CYANOCOBALAMIN
     Dosage: 2000 ?G, 1X/DAY
     Route: 060
  13. FIRDAPSE [Suspect]
     Active Substance: AMIFAMPRIDINE
     Dosage: 15 MG, 3X/DAY
     Route: 048
     Dates: start: 20191227, end: 20200102
  14. FIRDAPSE [Suspect]
     Active Substance: AMIFAMPRIDINE
     Dosage: 20 MG, 3X/DAY
     Route: 048
  15. FIRDAPSE [Suspect]
     Active Substance: AMIFAMPRIDINE
     Dosage: 20 MG, 3X/DAY
     Route: 048
  16. VITAMIN C [Concomitant]
     Active Substance: ASCORBIC ACID
     Dosage: UNK, 1X/DAY
  17. GABAPENTIN. [Concomitant]
     Active Substance: GABAPENTIN
     Dosage: 300 MG, 1X/DAY
  18. IRON [Concomitant]
     Active Substance: IRON
     Indication: ANAEMIA
  19. SUMATRIPTAN. [Concomitant]
     Active Substance: SUMATRIPTAN
  20. TAMOXIFEN [Suspect]
     Active Substance: TAMOXIFEN
     Dosage: UNK, 1X/DAY AT NIGHT
  21. FLUTICASONE PROPIONATE. [Concomitant]
     Active Substance: FLUTICASONE PROPIONATE

REACTIONS (24)
  - Rhinorrhoea [Unknown]
  - Irritability [Not Recovered/Not Resolved]
  - Peripheral coldness [Not Recovered/Not Resolved]
  - Sleep disorder [Recovering/Resolving]
  - Paraesthesia oral [Not Recovered/Not Resolved]
  - Upper respiratory tract infection [Recovering/Resolving]
  - Hemiplegic migraine [Not Recovered/Not Resolved]
  - Feeling cold [Not Recovered/Not Resolved]
  - Tenderness [Not Recovered/Not Resolved]
  - Night sweats [Not Recovered/Not Resolved]
  - Hot flush [Not Recovered/Not Resolved]
  - Abdominal distension [Not Recovered/Not Resolved]
  - Abdominal pain [Not Recovered/Not Resolved]
  - Dizziness [Recovering/Resolving]
  - Cough variant asthma [Not Recovered/Not Resolved]
  - Metrorrhagia [Not Recovered/Not Resolved]
  - Respiratory tract congestion [Unknown]
  - Pain in extremity [Recovering/Resolving]
  - Constipation [Not Recovered/Not Resolved]
  - Retching [Recovered/Resolved]
  - Paraesthesia [Not Recovered/Not Resolved]
  - Muscular weakness [Unknown]
  - Anxiety [Not Recovered/Not Resolved]
  - Fatigue [Unknown]

NARRATIVE: CASE EVENT DATE: 2020
